FAERS Safety Report 24771796 (Version 1)
Quarter: 2024Q4

REPORT INFORMATION
  Report Type: Spontaneous
  Country: US (occurrence: None)
  Receive Date: 20241224
  Receipt Date: 20241224
  Transmission Date: 20250114
  Serious: Yes (Hospitalization, Disabling)
  Sender: Public
  Company Number: None

PATIENT
  Age: 37 Year
  Sex: Male
  Weight: 67.5 kg

DRUGS (2)
  1. FINASTERIDE [Suspect]
     Active Substance: FINASTERIDE
     Indication: Alopecia
     Dosage: OTHER QUANTITY : .25 TABLET(S);?FREQUENCY : DAILY;?
     Route: 048
  2. FINASTERIDE [Suspect]
     Active Substance: FINASTERIDE
     Indication: Prophylaxis

REACTIONS (17)
  - Erectile dysfunction [None]
  - Sleep apnoea syndrome [None]
  - Depression [None]
  - Anxiety [None]
  - Loss of libido [None]
  - Amnesia [None]
  - Brain fog [None]
  - Muscle atrophy [None]
  - Asthenia [None]
  - Fatigue [None]
  - Gastrointestinal disorder [None]
  - Hypoaesthesia [None]
  - Anhedonia [None]
  - Panic attack [None]
  - Derealisation [None]
  - Cognitive disorder [None]
  - Suicidal ideation [None]

NARRATIVE: CASE EVENT DATE: 20201220
